FAERS Safety Report 6435337-8 (Version None)
Quarter: 2009Q4

REPORT INFORMATION
  Report Type: 
  Country: None (occurrence: None)
  Receive Date: 20091110
  Receipt Date: 20091027
  Transmission Date: 20100525
  Serious: Yes (Other)
  Sender: FDA-Public Use
  Company Number: US-GENENTECH-293291

PATIENT
  Sex: Male

DRUGS (2)
  1. AVASTIN [Suspect]
     Indication: COLON CANCER
     Dosage: UNK
     Route: 042
     Dates: start: 20070601
  2. XELODA [Suspect]
     Indication: COLON CANCER
     Dosage: 1500 MG, BID
     Route: 065
     Dates: start: 20061201

REACTIONS (1)
  - PRECANCEROUS SKIN LESION [None]
